FAERS Safety Report 9010330 (Version 1)
Quarter: 2013Q1

REPORT INFORMATION
  Report Type: Spontaneous
  Country: US (occurrence: US)
  Receive Date: 20130110
  Receipt Date: 20130110
  Transmission Date: 20140127
  Serious: Yes (Other)
  Sender: FDA-Public Use
  Company Number: US-009507513-0901USA02246

PATIENT
  Age: 9 Year
  Sex: Male
  Weight: 54.43 kg

DRUGS (1)
  1. SINGULAIR [Suspect]
     Indication: SEASONAL ALLERGY
     Dosage: ONCE A DAY
     Route: 048
     Dates: start: 20070915, end: 20070917

REACTIONS (3)
  - Abnormal behaviour [Unknown]
  - Aggression [Unknown]
  - Insomnia [Unknown]
